FAERS Safety Report 14637515 (Version 1)
Quarter: 2018Q1

REPORT INFORMATION
  Report Type: Spontaneous
  Country: US (occurrence: US)
  Receive Date: 20180314
  Receipt Date: 20180314
  Transmission Date: 20180509
  Serious: No
  Sender: FDA-Public Use
  Company Number: US-ALLERGAN-1719764US

PATIENT
  Age: 37 Year
  Sex: Male

DRUGS (2)
  1. NORCO [Suspect]
     Active Substance: ACETAMINOPHEN\HYDROCODONE BITARTRATE
     Indication: SYNOVIAL CYST
     Dosage: UNK
     Route: 065
     Dates: start: 20140807
  2. NORCO [Suspect]
     Active Substance: ACETAMINOPHEN\HYDROCODONE BITARTRATE
     Indication: TOOTH DISORDER
     Dosage: 2 DF, UNK
     Route: 048
     Dates: start: 20170507

REACTIONS (3)
  - Off label use [Unknown]
  - Prescription drug used without a prescription [Unknown]
  - Drug screen false positive [Unknown]

NARRATIVE: CASE EVENT DATE: 20170507
